FAERS Safety Report 20578956 (Version 1)
Quarter: 2022Q1

REPORT INFORMATION
  Report Type: Spontaneous
  Country: CH (occurrence: CH)
  Receive Date: 20220310
  Receipt Date: 20220310
  Transmission Date: 20220423
  Serious: Yes (Hospitalization, Other)
  Sender: FDA-Public Use
  Company Number: CH-SLATE RUN PHARMACEUTICALS-22CH000953

PATIENT

DRUGS (6)
  1. CINACALCET HYDROCHLORIDE [Suspect]
     Active Substance: CINACALCET HYDROCHLORIDE
     Indication: Hypercalcaemia
     Dosage: 30 MILLIGRAM, BID
     Dates: start: 2019, end: 20201012
  2. CINACALCET HYDROCHLORIDE [Suspect]
     Active Substance: CINACALCET HYDROCHLORIDE
     Dosage: 90 MILLIGRAM, BID
     Dates: start: 2019, end: 2019
  3. CINACALCET HYDROCHLORIDE [Suspect]
     Active Substance: CINACALCET HYDROCHLORIDE
     Dosage: 30 MILLIGRAM, BID
     Dates: start: 2019, end: 2019
  4. SODIUM CHLORIDE [Concomitant]
     Active Substance: SODIUM CHLORIDE
     Indication: Hypercalcaemia
     Dosage: UNK
     Route: 042
     Dates: start: 20190129
  5. CALCITONIN [Concomitant]
     Active Substance: CALCITONIN
     Indication: Hypercalcaemia
  6. ZOLEDRONIC ACID [Concomitant]
     Active Substance: ZOLEDRONIC ACID
     Indication: Hypercalcaemia
     Dosage: 5 MILLIGRAM
     Route: 042

REACTIONS (5)
  - Therapy non-responder [Recovered/Resolved]
  - Acute kidney injury [Unknown]
  - Hypercalcaemia [Recovered/Resolved]
  - Nausea [Unknown]
  - Vomiting [Unknown]

NARRATIVE: CASE EVENT DATE: 20190101
